FAERS Safety Report 10243340 (Version 6)
Quarter: 2014Q3

REPORT INFORMATION
  Report Type: Report from Study
  Country: US (occurrence: US)
  Receive Date: 20140618
  Receipt Date: 20140929
  Transmission Date: 20150326
  Serious: Yes (Other)
  Sender: FDA-Public Use
  Company Number: PHEH2014US012148

PATIENT
  Age: 67 Year
  Sex: Male
  Weight: 89.25 kg

DRUGS (14)
  1. AMLODIPINE [Concomitant]
     Active Substance: AMLODIPINE BESYLATE
  2. NORTRIPTYLINE [Concomitant]
     Active Substance: NORTRIPTYLINE
  3. AMOXICILLIN. [Concomitant]
     Active Substance: AMOXICILLIN
     Dosage: 500 UKN, UNK
     Route: 048
  4. LEVOTHYROXINE [Concomitant]
     Active Substance: LEVOTHYROXINE
  5. BACLOFEN. [Concomitant]
     Active Substance: BACLOFEN
     Dosage: 10 UKN, UNK
  6. NUCYNTA [Concomitant]
     Active Substance: TAPENTADOL HYDROCHLORIDE
  7. GILENYA [Suspect]
     Active Substance: FINGOLIMOD HYDROCHLORIDE
     Indication: MULTIPLE SCLEROSIS
     Dosage: 0.5 MG, QD
     Route: 048
     Dates: start: 20140513, end: 20140826
  8. OXCARBAZEPINE. [Concomitant]
     Active Substance: OXCARBAZEPINE
  9. NEXIUM [Concomitant]
     Active Substance: ESOMEPRAZOLE MAGNESIUM
  10. GABAPENTIN. [Concomitant]
     Active Substance: GABAPENTIN
  11. CARISOPRODOL. [Concomitant]
     Active Substance: CARISOPRODOL
  12. TIZANIDINE [Concomitant]
     Active Substance: TIZANIDINE
  13. POTASSIUM [Concomitant]
     Active Substance: POTASSIUM
  14. DELZICOL [Concomitant]
     Active Substance: MESALAMINE

REACTIONS (9)
  - Temporomandibular joint syndrome [Unknown]
  - Condition aggravated [Not Recovered/Not Resolved]
  - Eye haemorrhage [Unknown]
  - Muscle spasms [Not Recovered/Not Resolved]
  - Trigeminal neuralgia [Recovering/Resolving]
  - Gingival pain [Recovered/Resolved]
  - Macular oedema [Unknown]
  - Tenderness [Unknown]
  - Pain [Not Recovered/Not Resolved]

NARRATIVE: CASE EVENT DATE: 20140518
